FAERS Safety Report 12159252 (Version 1)
Quarter: 2016Q1

REPORT INFORMATION
  Report Type: Spontaneous
  Country: US (occurrence: US)
  Receive Date: 20160308
  Receipt Date: 20160308
  Transmission Date: 20160526
  Serious: Yes (Hospitalization, Other)
  Sender: FDA-Public Use
  Company Number: PHHY2015US128023

PATIENT
  Age: 25 Year
  Sex: Male

DRUGS (2)
  1. ONDANSETRON HYDROCHLORIDE. [Suspect]
     Active Substance: ONDANSETRON HYDROCHLORIDE
     Indication: NAUSEA
     Dosage: 4 MG TABLETS UP TO 40 TABLETS/DAY
     Route: 065
  2. ONDANSETRON HYDROCHLORIDE. [Suspect]
     Active Substance: ONDANSETRON HYDROCHLORIDE
     Indication: VOMITING

REACTIONS (7)
  - Blindness [Unknown]
  - Posterior reversible encephalopathy syndrome [Recovered/Resolved]
  - Cerebral haemorrhage [Unknown]
  - Headache [Unknown]
  - Intracranial pressure increased [Unknown]
  - Blood pressure increased [Unknown]
  - Brain oedema [Unknown]
